FAERS Safety Report 11254562 (Version 2)
Quarter: 2015Q3

REPORT INFORMATION
  Report Type: Spontaneous
  Country: DE (occurrence: DE)
  Receive Date: 20150709
  Receipt Date: 20150723
  Transmission Date: 20151125
  Serious: Yes (Other)
  Sender: FDA-Public Use
  Company Number: DE-SA-2015SA096853

PATIENT
  Age: 31 Year
  Sex: Female

DRUGS (3)
  1. ACICLOVIR [Concomitant]
     Active Substance: ACYCLOVIR
     Indication: ANTIVIRAL PROPHYLAXIS
     Route: 048
     Dates: start: 20150413, end: 20150504
  2. URBASON [Concomitant]
     Active Substance: METHYLPREDNISOLONE
     Indication: ALLERGY PROPHYLAXIS
     Route: 042
     Dates: start: 20150413, end: 20150415
  3. LEMTRADA [Suspect]
     Active Substance: ALEMTUZUMAB
     Indication: MULTIPLE SCLEROSIS
     Route: 041
     Dates: start: 20150413, end: 20150417

REACTIONS (1)
  - Leukopenia [Not Recovered/Not Resolved]

NARRATIVE: CASE EVENT DATE: 20150603
